FAERS Safety Report 26057716 (Version 2)
Quarter: 2025Q4

REPORT INFORMATION
  Report Type: Report from Study
  Country: EG (occurrence: EG)
  Receive Date: 20251118
  Receipt Date: 20251224
  Transmission Date: 20260119
  Serious: Yes (Other)
  Sender: ROCHE
  Company Number: EG-ROCHE-10000432642

PATIENT
  Age: 27 Year
  Sex: Female
  Weight: 92 kg

DRUGS (1)
  1. OCREVUS [Suspect]
     Active Substance: OCRELIZUMAB
     Indication: Multiple sclerosis
     Route: 042
     Dates: start: 20231107

REACTIONS (8)
  - Thrombosis [Not Recovered/Not Resolved]
  - Thrombosis [Recovered/Resolved]
  - Hypotension [Not Recovered/Not Resolved]
  - Oropharyngeal pain [Recovered/Resolved]
  - Sensitive skin [Recovered/Resolved]
  - Fatigue [Unknown]
  - Disturbance in attention [Not Recovered/Not Resolved]
  - Asthenia [Not Recovered/Not Resolved]

NARRATIVE: CASE EVENT DATE: 20250529
